FAERS Safety Report 4570217-4 (Version None)
Quarter: 2005Q1

REPORT INFORMATION
  Report Type: 
  Country: None (occurrence: None)
  Receive Date: 20050202
  Receipt Date: 20050120
  Transmission Date: 20050727
  Serious: Yes (Hospitalization)
  Sender: FDA-Public Use
  Company Number: 2005016502

PATIENT
  Age: 72 Year
  Sex: Male

DRUGS (7)
  1. ZOLOFT [Suspect]
     Indication: DEPRESSION
     Dosage: 100 MG (50 MG)
     Dates: start: 20041001
  2. INSULIN [Suspect]
     Indication: ILL-DEFINED DISORDER
  3. FUROSEMIDE [Concomitant]
  4. TERTATOLOL (TERTATOLOL) [Concomitant]
  5. FOSINOPRIL SODIUM [Concomitant]
  6. CALCITRIOL [Concomitant]
  7. ALLOPURINOL [Concomitant]

REACTIONS (5)
  - AGITATION [None]
  - DELIRIUM [None]
  - HYPOGLYCAEMIC COMA [None]
  - MEDICATION ERROR [None]
  - URINARY RETENTION [None]
